FAERS Safety Report 7421784-4 (Version None)
Quarter: 2011Q2

REPORT INFORMATION
  Report Type: 
  Country: None (occurrence: None)
  Receive Date: 20110418
  Receipt Date: 20110407
  Transmission Date: 20111010
  Serious: Yes (Other)
  Sender: FDA-Public Use
  Company Number: US-ASTRAZENECA-2011SE13831

PATIENT
  Age: 78 Year
  Sex: Female

DRUGS (1)
  1. ATACAND HCT [Suspect]
     Route: 048

REACTIONS (4)
  - THROAT LESION [None]
  - AMNESIA [None]
  - NEOPLASM RECURRENCE [None]
  - RADIOTHERAPY [None]
